FAERS Safety Report 10672912 (Version 6)
Quarter: 2015Q1

REPORT INFORMATION
  Report Type: Spontaneous
  Country: US (occurrence: US)
  Receive Date: 20141223
  Receipt Date: 20150327
  Transmission Date: 20150720
  Serious: Yes (Hospitalization)
  Sender: FDA-Public Use
  Company Number: US-PFIZER INC-2014352491

PATIENT
  Age: 62 Year
  Sex: Female

DRUGS (6)
  1. ESTRACE [Concomitant]
     Active Substance: ESTRADIOL
     Dosage: UNK
     Dates: start: 2012
  2. PREMARIN [Suspect]
     Active Substance: ESTROGENS, CONJUGATED
     Indication: ARTIFICIAL MENOPAUSE
     Dosage: UNK
     Dates: start: 2000
  3. ATARAX [Concomitant]
     Active Substance: HYDROXYZINE\HYDROXYZINE HYDROCHLORIDE
     Dosage: UNK
     Dates: start: 2005
  4. PREMARIN [Suspect]
     Active Substance: ESTROGENS, CONJUGATED
     Dosage: 1.25 MG, 1X/DAY
     Dates: start: 20120226
  5. PREMARIN [Suspect]
     Active Substance: ESTROGENS, CONJUGATED
     Indication: OESTROGEN REPLACEMENT THERAPY
     Dosage: 0.65 MG, UNK
     Dates: start: 1989
  6. XANAX [Concomitant]
     Active Substance: ALPRAZOLAM
     Dosage: UNK
     Dates: start: 2005

REACTIONS (11)
  - Depressed mood [Unknown]
  - Asthenia [Recovered/Resolved]
  - Joint swelling [Recovered/Resolved with Sequelae]
  - Drug intolerance [Recovered/Resolved]
  - Drug ineffective [Unknown]
  - Heart rate increased [Recovered/Resolved with Sequelae]
  - Nipple disorder [Recovered/Resolved]
  - Breast pain [Unknown]
  - Feeling hot [Recovered/Resolved]
  - Anxiety [Recovered/Resolved]
  - Nipple pain [Recovered/Resolved]
